FAERS Safety Report 15277698 (Version 2)
Quarter: 2018Q4

REPORT INFORMATION
  Report Type: Report from Study
  Country: ES (occurrence: ES)
  Receive Date: 20180814
  Receipt Date: 20181022
  Transmission Date: 20190204
  Serious: Yes (Other)
  Sender: FDA-Public Use
  Company Number: ES-PFIZER INC-2018322402

PATIENT

DRUGS (2)
  1. PACLITAXEL. [Suspect]
     Active Substance: PACLITAXEL
     Indication: BREAST CANCER METASTATIC
     Dosage: 80 MG/M2, UNK
     Route: 042
     Dates: start: 20170116
  2. BEVACIZUMAB. [Suspect]
     Active Substance: BEVACIZUMAB
     Indication: BREAST CANCER METASTATIC
     Dosage: 5 MG/KG, UNK
     Route: 042
     Dates: start: 20170116

REACTIONS (12)
  - Asthenia [Recovered/Resolved]
  - Nausea [Recovered/Resolved]
  - Neutrophil count decreased [Unknown]
  - Blood alkaline phosphatase increased [Recovered/Resolved]
  - Leukopenia [Recovered/Resolved]
  - Alopecia [Recovered/Resolved]
  - Hypercholesterolaemia [Not Recovered/Not Resolved]
  - Neutrophil count decreased [Unknown]
  - Febrile neutropenia [Recovered/Resolved]
  - Madarosis [Recovered/Resolved]
  - Dyspepsia [Recovered/Resolved]
  - Bone fistula [Recovered/Resolved]

NARRATIVE: CASE EVENT DATE: 20170116
